FAERS Safety Report 23190704 (Version 1)
Quarter: 2023Q4

REPORT INFORMATION
  Report Type: Spontaneous
  Country: US (occurrence: US)
  Receive Date: 20231116
  Receipt Date: 20231116
  Transmission Date: 20240110
  Serious: No
  Sender: FDA-Public Use
  Company Number: US-TARO PHARMACEUTICALS USA INC.-2023TAR00313

PATIENT

DRUGS (1)
  1. MUPIROCIN [Suspect]
     Active Substance: MUPIROCIN
     Indication: Rhinitis
     Dosage: UNK, IN THE NOSE
     Route: 045

REACTIONS (3)
  - Nasopharyngitis [Unknown]
  - Off label use [Unknown]
  - SARS-CoV-2 test positive [Unknown]
